FAERS Safety Report 7276799-6 (Version None)
Quarter: 2011Q1

REPORT INFORMATION
  Report Type: 
  Country: None (occurrence: None)
  Receive Date: 20110207
  Receipt Date: 20110127
  Transmission Date: 20110831
  Serious: Yes (Other)
  Sender: FDA-Public Use
  Company Number: US-BIOGENIDEC-2009BI042399

PATIENT
  Age: 53 Year
  Sex: Female
  Weight: 90 kg

DRUGS (5)
  1. TYSABRI [Suspect]
     Indication: MULTIPLE SCLEROSIS
     Route: 042
     Dates: start: 20070608, end: 20090101
  2. TYSABRI [Suspect]
     Route: 042
     Dates: start: 20090101, end: 20090101
  3. TYSABRI [Suspect]
     Route: 042
     Dates: start: 20090101, end: 20100701
  4. TYSABRI [Suspect]
     Route: 042
     Dates: start: 20100917, end: 20101001
  5. TYSABRI [Suspect]
     Route: 042
     Dates: start: 20101001

REACTIONS (9)
  - STRESS [None]
  - HYPOAESTHESIA [None]
  - OPTIC NEURITIS [None]
  - MULTIPLE SCLEROSIS [None]
  - BREAST CANCER [None]
  - MULTIPLE SCLEROSIS RELAPSE [None]
  - TEMPERATURE INTOLERANCE [None]
  - COLONIC POLYP [None]
  - NUCLEAR MAGNETIC RESONANCE IMAGING ABNORMAL [None]
